FAERS Safety Report 7584702-4 (Version None)
Quarter: 2011Q2

REPORT INFORMATION
  Report Type: 
  Country: None (occurrence: None)
  Receive Date: 20110630
  Receipt Date: 20110616
  Transmission Date: 20111010
  Serious: Yes (Other)
  Sender: FDA-Public Use
  Company Number: PHHY2011FR53588

PATIENT
  Age: 74 Year
  Sex: Male

DRUGS (2)
  1. RASILEZ [Suspect]
     Dosage: 300 MG, UNK
     Route: 048
     Dates: start: 20110101
  2. MICARDIS [Concomitant]
     Dosage: 80 MG, UNK

REACTIONS (1)
  - BONE MARROW FAILURE [None]
